FAERS Safety Report 6433393-4 (Version None)
Quarter: 2009Q4

REPORT INFORMATION
  Report Type: 
  Country: None (occurrence: None)
  Receive Date: 20091106
  Receipt Date: 20091106
  Transmission Date: 20100525
  Serious: Yes (Other)
  Sender: FDA-Public Use
  Company Number: None

PATIENT
  Sex: Female
  Weight: 98.8842 kg

DRUGS (2)
  1. IMPLANON [Suspect]
     Indication: CONTRACEPTION
     Dosage: 68 MG Q 3 YEARS SQ
     Route: 058
     Dates: start: 20091014, end: 20091103
  2. IMPLANON [Suspect]
     Indication: MENSTRUAL DISORDER
     Dosage: 68 MG Q 3 YEARS SQ
     Route: 058
     Dates: start: 20091014, end: 20091103

REACTIONS (3)
  - HEADACHE [None]
  - MIGRAINE [None]
  - PHOTOPHOBIA [None]
